FAERS Safety Report 11656654 (Version 1)
Quarter: 2015Q4

REPORT INFORMATION
  Report Type: Spontaneous
  Country: US (occurrence: US)
  Receive Date: 20151023
  Receipt Date: 20151023
  Transmission Date: 20160304
  Serious: Yes (Other)
  Sender: FDA-Public Use
  Company Number: US-BAYER-2015-446488

PATIENT
  Sex: Female

DRUGS (3)
  1. FLOXIN [CIPROFLOXACIN] [Suspect]
     Active Substance: CIPROFLOXACIN
     Dosage: UNK
  2. CIPRO [Suspect]
     Active Substance: CIPROFLOXACIN HYDROCHLORIDE
     Indication: BRONCHITIS
     Dosage: UNK
     Dates: start: 199802
  3. CIPRO [Suspect]
     Active Substance: CIPROFLOXACIN HYDROCHLORIDE
     Indication: BRONCHITIS
     Dosage: UNK
     Dates: start: 199711

REACTIONS (17)
  - Adverse event [None]
  - Neuropathy peripheral [None]
  - Muscle twitching [None]
  - Costochondritis [None]
  - Appendicectomy [None]
  - Pain [None]
  - Autoimmune thyroiditis [None]
  - Muscle spasms [None]
  - Irritable bowel syndrome [None]
  - Cerebral disorder [None]
  - Visual impairment [None]
  - Malaise [None]
  - Tendon disorder [None]
  - Fibromyalgia [None]
  - Arthralgia [None]
  - Panic attack [None]
  - Hepatic function abnormal [None]
